FAERS Safety Report 5143339-7 (Version None)
Quarter: 2006Q4

REPORT INFORMATION
  Report Type: 
  Country: None (occurrence: None)
  Receive Date: 20061101
  Receipt Date: 20061101
  Transmission Date: 20070319
  Serious: Yes (Other)
  Sender: FDA-Public Use
  Company Number: None

PATIENT
  Age: 33 Year
  Sex: Female
  Weight: 60 kg

DRUGS (2)
  1. SODIUM CHLORIDE [Suspect]
     Indication: CHEMOTHERAPY
     Dosage: 10 ML 0.9% PRE-CHEMO IV BOLUS
     Route: 040
     Dates: start: 20060501, end: 20061026
  2. SODIUM CHLORIDE [Suspect]
     Indication: INTRAVENOUS CATHETER MANAGEMENT
     Dosage: 10 ML 0.9% PRE-CHEMO IV BOLUS
     Route: 040
     Dates: start: 20060501, end: 20061026

REACTIONS (4)
  - DYSGEUSIA [None]
  - NAUSEA [None]
  - PAROSMIA [None]
  - VOMITING [None]
